FAERS Safety Report 10237743 (Version 1)
Quarter: 2014Q2

REPORT INFORMATION
  Report Type: Spontaneous
  Country: US (occurrence: US)
  Receive Date: 20140616
  Receipt Date: 20140616
  Transmission Date: 20141212
  Serious: Yes (Other)
  Sender: FDA-Public Use
  Company Number: US-BRISTOL-MYERS SQUIBB COMPANY-20967048

PATIENT
  Age: 4 Decade
  Sex: Male

DRUGS (2)
  1. COUMADIN [Suspect]
  2. LOVENOX [Suspect]

REACTIONS (2)
  - Hypercoagulation [Unknown]
  - Nephrotic syndrome [Unknown]
